FAERS Safety Report 8016354-3 (Version None)
Quarter: 2011Q4

REPORT INFORMATION
  Report Type: 
  Country: None (occurrence: None)
  Receive Date: 20111230
  Receipt Date: 20111222
  Transmission Date: 20120403
  Serious: Yes (Death, Other)
  Sender: FDA-Public Use
  Company Number: JP-GENZYME-THYM-1002804

PATIENT
  Sex: Female
  Weight: 47 kg

DRUGS (18)
  1. THYMOGLOBULIN [Suspect]
     Dosage: 25 MG, ONCE
     Route: 042
     Dates: start: 20110610, end: 20110610
  2. TACROLIMUS [Concomitant]
     Indication: ACUTE MYELOID LEUKAEMIA
     Dosage: UNK
     Dates: start: 20110225
  3. IMMUNE GLOBULIN NOS [Concomitant]
     Indication: INFECTION PROPHYLAXIS
     Dosage: UNK
     Dates: start: 20110316, end: 20110819
  4. THYMOGLOBULIN [Suspect]
     Dosage: 25 MG, ONCE
     Route: 042
     Dates: start: 20110701, end: 20110701
  5. THYMOGLOBULIN [Suspect]
     Dosage: 25 MG, ONCE
     Route: 042
     Dates: start: 20110713, end: 20110713
  6. FOSCARNET SODIUM [Concomitant]
     Indication: INFECTION PROPHYLAXIS
     Dosage: UNK
     Dates: start: 20110225, end: 20110825
  7. THYMOGLOBULIN [Suspect]
     Dosage: 25 MG, ONCE
     Route: 042
     Dates: start: 20110803, end: 20110803
  8. THYMOGLOBULIN [Suspect]
     Dosage: 50 MG, ONCE
     Route: 042
     Dates: start: 20110302, end: 20110302
  9. THYMOGLOBULIN [Suspect]
     Dosage: 50 MG, ONCE
     Route: 042
     Dates: start: 20110325, end: 20110325
  10. THYMOGLOBULIN [Suspect]
     Dosage: 25 MG, ONCE
     Route: 042
     Dates: start: 20110413, end: 20110413
  11. THYMOGLOBULIN [Suspect]
     Dosage: 25 MG, ONCE
     Route: 042
     Dates: start: 20110623, end: 20110623
  12. PREDNISOLONE [Concomitant]
     Indication: ACUTE MYELOID LEUKAEMIA
     Dosage: UNK
     Dates: start: 20110225
  13. GANCICLOVIR [Concomitant]
     Indication: INFECTION PROPHYLAXIS
     Dosage: UNK
     Dates: start: 20110320, end: 20110823
  14. THYMOGLOBULIN [Suspect]
     Dosage: 50 MG, ONCE
     Route: 042
     Dates: start: 20110602, end: 20110602
  15. THYMOGLOBULIN [Suspect]
     Dosage: 25 MG, ONCE
     Route: 042
     Dates: start: 20110615, end: 20110615
  16. THYMOGLOBULIN [Suspect]
     Indication: ACUTE GRAFT VERSUS HOST DISEASE
     Dosage: 50 MG, ONCE
     Route: 042
     Dates: start: 20110225, end: 20110225
  17. THYMOGLOBULIN [Suspect]
     Dosage: 25 MG, ONCE
     Route: 042
     Dates: start: 20110722, end: 20110722
  18. THYMOGLOBULIN [Suspect]
     Dosage: 25 MG, ONCE
     Route: 042
     Dates: start: 20110708, end: 20110708

REACTIONS (3)
  - RETINITIS VIRAL [None]
  - ACUTE GRAFT VERSUS HOST DISEASE [None]
  - DEATH [None]
